FAERS Safety Report 6247521-7 (Version None)
Quarter: 2009Q2

REPORT INFORMATION
  Report Type: 
  Country: None (occurrence: None)
  Receive Date: 20090626
  Receipt Date: 20090616
  Transmission Date: 20091009
  Serious: Yes (Death, Hospitalization)
  Sender: FDA-Public Use
  Company Number: FR-JNJFOC-20090500939

PATIENT
  Sex: Male

DRUGS (12)
  1. CONTRAMAL [Suspect]
     Indication: DRUG USE FOR UNKNOWN INDICATION
     Dosage: 50 MG CAPSULE, 100-200 MG DAILY
     Route: 048
     Dates: start: 20080820, end: 20080905
  2. TAVANIC [Suspect]
     Indication: GENERALISED OEDEMA
     Route: 048
  3. TYGACIL [Suspect]
     Indication: GENERALISED OEDEMA
     Route: 042
  4. CEFTRIAXONE [Suspect]
     Route: 042
  5. CEFTRIAXONE [Suspect]
     Indication: GENERALISED OEDEMA
     Route: 042
  6. FLUINDIONE [Interacting]
     Route: 048
  7. FLUINDIONE [Interacting]
     Indication: ATRIAL FIBRILLATION
     Route: 048
  8. OMIX [Concomitant]
     Indication: PROSTATIC ADENOMA
     Route: 048
  9. ATARAX [Concomitant]
     Route: 065
  10. HYTACAND [Concomitant]
     Indication: HYPERTENSION
     Route: 048
  11. NOOTROPYL [Concomitant]
     Route: 048
  12. DOBUTAMINE HCL [Concomitant]
     Indication: GENERALISED OEDEMA
     Route: 065

REACTIONS (4)
  - CEREBRAL HAEMATOMA [None]
  - DRUG INTERACTION [None]
  - INTERNATIONAL NORMALISED RATIO INCREASED [None]
  - OVERDOSE [None]
